FAERS Safety Report 7150105-X (Version None)
Quarter: 2010Q4

REPORT INFORMATION
  Report Type: 
  Country: None (occurrence: None)
  Receive Date: 20101210
  Receipt Date: 20101202
  Transmission Date: 20110411
  Serious: Yes (Other)
  Sender: FDA-Public Use
  Company Number: LB-US-EMD SERONO, INC.-7030368

PATIENT
  Sex: Female
  Weight: 61 kg

DRUGS (3)
  1. GONAL-F [Suspect]
     Indication: OVULATION INDUCTION
     Route: 058
     Dates: start: 20101107, end: 20101115
  2. FOLLICT [Concomitant]
     Route: 030
     Dates: start: 20101107, end: 20101115
  3. DECAPEPTYL [Concomitant]
     Route: 058
     Dates: start: 20101107, end: 20101115

REACTIONS (1)
  - HYPERTENSION [None]
